FAERS Safety Report 6969740-4 (Version None)
Quarter: 2010Q3

REPORT INFORMATION
  Report Type: 
  Country: None (occurrence: None)
  Receive Date: 20100908
  Receipt Date: 20100831
  Transmission Date: 20110219
  Serious: Yes (Hospitalization)
  Sender: FDA-Public Use
  Company Number: US-BIOGENIDEC-2010BI030473

PATIENT
  Age: 45 Year
  Sex: Male

DRUGS (3)
  1. AVONEX [Suspect]
     Indication: MULTIPLE SCLEROSIS
     Route: 030
     Dates: start: 20100818
  2. AVONEX [Suspect]
     Route: 030
     Dates: start: 20010706, end: 20030708
  3. AVONEX [Suspect]
     Route: 030
     Dates: start: 20030809, end: 20100811

REACTIONS (2)
  - CEREBRAL THROMBOSIS [None]
  - HEADACHE [None]
